FAERS Safety Report 17577986 (Version 1)
Quarter: 2020Q1

REPORT INFORMATION
  Report Type: Spontaneous
  Country: US (occurrence: US)
  Receive Date: 20200324
  Receipt Date: 20200324
  Transmission Date: 20200409
  Serious: Yes (Hospitalization)
  Sender: FDA-Public Use
  Company Number: US-VIFOR (INTERNATIONAL) INC.-VIT-2020-04732

PATIENT
  Age: 87 Year
  Sex: Male

DRUGS (26)
  1. VELTASSA [Suspect]
     Active Substance: PATIROMER
     Indication: HYPERKALAEMIA
     Route: 048
     Dates: start: 20200114
  2. GABAPENTIN. [Concomitant]
     Active Substance: GABAPENTIN
     Dates: start: 20191231
  3. ELIQUIS [Concomitant]
     Active Substance: APIXABAN
     Dates: start: 20190730
  4. ELIQUIS [Concomitant]
     Active Substance: APIXABAN
     Dates: start: 20200120
  5. ELIQUIS [Concomitant]
     Active Substance: APIXABAN
     Dates: start: 20200121
  6. TAMSULOSIN [Concomitant]
     Active Substance: TAMSULOSIN
     Dates: start: 20200209
  7. ROSUVASTATIN. [Concomitant]
     Active Substance: ROSUVASTATIN
     Dates: start: 20200221
  8. ROSUVASTATIN. [Concomitant]
     Active Substance: ROSUVASTATIN
     Dates: start: 20200224
  9. MEMANTINE HCL [Concomitant]
     Active Substance: MEMANTINE
     Dates: start: 20191115
  10. LEVOTHYROXIN [Concomitant]
     Active Substance: LEVOTHYROXINE
     Dates: start: 20200207
  11. OMEGA 3-ACID [Concomitant]
     Dates: start: 20200219
  12. VELTASSA [Suspect]
     Active Substance: PATIROMER
     Dosage: 1 OR 2 DOSES
     Route: 048
     Dates: start: 20200316
  13. SODIUM BICAR [Concomitant]
     Dates: start: 20191106
  14. ROSUVASTATIN. [Concomitant]
     Active Substance: ROSUVASTATIN
     Dates: start: 20200219
  15. DONEPEZIL. [Concomitant]
     Active Substance: DONEPEZIL
     Dates: start: 20191227
  16. DONEPEZIL. [Concomitant]
     Active Substance: DONEPEZIL
     Dates: start: 20191231
  17. PANTOPRAZOLE [Concomitant]
     Active Substance: PANTOPRAZOLE
     Dates: start: 20200207
  18. MEMANTINE HCL [Concomitant]
     Active Substance: MEMANTINE
     Dates: start: 20200207
  19. FINASTERIDE. [Concomitant]
     Active Substance: FINASTERIDE
     Dates: start: 20191126
  20. ALLOPURINOL. [Concomitant]
     Active Substance: ALLOPURINOL
     Dates: start: 20190930
  21. ROSUVASTATIN. [Concomitant]
     Active Substance: ROSUVASTATIN
     Dates: start: 20200120
  22. PANTOPRAZOLE [Concomitant]
     Active Substance: PANTOPRAZOLE
     Dates: start: 20191115
  23. LEVOTHYROXIN [Concomitant]
     Active Substance: LEVOTHYROXINE
     Dates: start: 20200209
  24. LEVOTHYROXIN [Concomitant]
     Active Substance: LEVOTHYROXINE
     Dates: start: 20191115
  25. TAMSULOSIN [Concomitant]
     Active Substance: TAMSULOSIN
     Dates: start: 20191115
  26. ROSUVASTATIN. [Concomitant]
     Active Substance: ROSUVASTATIN
     Dates: start: 20191115

REACTIONS (3)
  - Hospitalisation [Not Recovered/Not Resolved]
  - Ill-defined disorder [Unknown]
  - Off label use [Unknown]

NARRATIVE: CASE EVENT DATE: 20200316
